FAERS Safety Report 4420381-2 (Version None)
Quarter: 2004Q3

REPORT INFORMATION
  Report Type: 
  Country: None (occurrence: None)
  Receive Date: 20040804
  Receipt Date: 20040714
  Transmission Date: 20050211
  Serious: Yes (Other)
  Sender: FDA-Public Use
  Company Number: JP_040603517

PATIENT
  Age: 74 Year
  Sex: Female
  Weight: 52 kg

DRUGS (8)
  1. EVISTA [Suspect]
     Indication: OSTEOPOROSIS
     Dosage: 60 MG/ 1 DAY
     Dates: start: 20040514, end: 20040619
  2. EVISTA [Suspect]
  3. METHYCOBAL(MECOBALAMIN) [Concomitant]
  4. ALFACALCIDOL [Concomitant]
  5. ADALAT [Concomitant]
  6. ALDACTONE [Concomitant]
  7. LIPITOR [Concomitant]
  8. MUCOSTA(REBAMIPIDE) [Concomitant]

REACTIONS (1)
  - RETINAL ARTERY OCCLUSION [None]
